FAERS Safety Report 8883334 (Version 9)
Quarter: 2015Q1

REPORT INFORMATION
  Report Type: Report from Study
  Country: US (occurrence: US)
  Receive Date: 20121102
  Receipt Date: 20150316
  Transmission Date: 20150721
  Serious: Yes (Hospitalization)
  Sender: FDA-Public Use
  Company Number: US-JNJFOC-20121016154

PATIENT
  Age: 5 Year
  Sex: Male
  Weight: 14.97 kg

DRUGS (5)
  1. HUMIRA [Concomitant]
     Active Substance: ADALIMUMAB
     Dates: start: 20121029
  2. METHOTREXATE [Concomitant]
     Active Substance: METHOTREXATE
  3. PROTOPIC [Concomitant]
     Active Substance: TACROLIMUS
  4. REMICADE [Suspect]
     Active Substance: INFLIXIMAB
     Indication: INFLAMMATORY BOWEL DISEASE
     Route: 042
     Dates: start: 20110324, end: 20120907
  5. HUMIRA [Concomitant]
     Active Substance: ADALIMUMAB
     Dates: start: 20120925

REACTIONS (2)
  - Anal stenosis [Not Recovered/Not Resolved]
  - Bacteraemia [Recovered/Resolved]

NARRATIVE: CASE EVENT DATE: 20121020
